FAERS Safety Report 8457204-0 (Version None)
Quarter: 2012Q2

REPORT INFORMATION
  Report Type: 
  Country: None (occurrence: None)
  Receive Date: 20120621
  Receipt Date: 20120615
  Transmission Date: 20120825
  Serious: Yes (Hospitalization, Other)
  Sender: FDA-Public Use
  Company Number: PHHY2012BR052083

PATIENT
  Age: 90 Year
  Sex: Male

DRUGS (2)
  1. DIOVAN [Suspect]
     Indication: HYPERTENSION
     Dosage: 160 MG, DAILY
  2. DIOVAN [Suspect]
     Dosage: 2 TABLETS (80 MG), DAILY

REACTIONS (7)
  - SYNCOPE [None]
  - ARRHYTHMIA [None]
  - MUSCLE RIGIDITY [None]
  - MOVEMENT DISORDER [None]
  - CEREBROVASCULAR ACCIDENT [None]
  - PARKINSON'S DISEASE [None]
  - DISORIENTATION [None]
